FAERS Safety Report 5913058-5 (Version None)
Quarter: 2008Q4

REPORT INFORMATION
  Report Type: 
  Country: None (occurrence: None)
  Receive Date: 20081008
  Receipt Date: 20081008
  Transmission Date: 20090506
  Serious: Yes (Life-Threatening, Hospitalization, Disabling)
  Sender: FDA-Public Use
  Company Number: None

PATIENT
  Age: 14 Year
  Sex: Female
  Weight: 45.3597 kg

DRUGS (2)
  1. SINGULAIR [Suspect]
     Indication: ASTHMA
     Dosage: 5 MG ONCE A DAY MOUTH
     Route: 048
     Dates: start: 20060302, end: 20070401
  2. SINGULAIR [Suspect]
     Indication: ASTHMA
     Dosage: 10 MG ONCE A DAY MOUTH
     Route: 048
     Dates: start: 20070401, end: 20080201

REACTIONS (15)
  - ABDOMINAL PAIN UPPER [None]
  - ANXIETY [None]
  - BLISTER [None]
  - HOMICIDAL IDEATION [None]
  - IRRITABILITY [None]
  - LIP SWELLING [None]
  - MALAISE [None]
  - PANIC ATTACK [None]
  - PARANOIA [None]
  - RASH [None]
  - SKIN EXFOLIATION [None]
  - SUICIDAL IDEATION [None]
  - SWELLING FACE [None]
  - SWOLLEN TONGUE [None]
  - URTICARIA [None]
